FAERS Safety Report 12379662 (Version 1)
Quarter: 2016Q2

REPORT INFORMATION
  Report Type: Spontaneous
  Country: US (occurrence: US)
  Receive Date: 20160518
  Receipt Date: 20160518
  Transmission Date: 20160815
  Serious: No
  Sender: FDA-Public Use
  Company Number: US-ACCORD-038307

PATIENT
  Age: 72 Year
  Sex: Female
  Weight: 68.2 kg

DRUGS (2)
  1. LEVOTHYROXINE. [Concomitant]
     Active Substance: LEVOTHYROXINE
  2. LISINOPRIL ACCORD [Suspect]
     Active Substance: LISINOPRIL
     Indication: HYPERTENSION
     Route: 048
     Dates: start: 201512

REACTIONS (3)
  - Blood pressure increased [Not Recovered/Not Resolved]
  - Product substitution issue [Unknown]
  - No therapeutic response [Unknown]
